FAERS Safety Report 4334114-1 (Version None)
Quarter: 2004Q2

REPORT INFORMATION
  Report Type: 
  Country: None (occurrence: None)
  Receive Date: 20040402
  Receipt Date: 20040325
  Transmission Date: 20050107
  Serious: Yes (Hospitalization, Other)
  Sender: FDA-Public Use
  Company Number: 2004018574

PATIENT
  Age: 79 Year
  Sex: Male

DRUGS (7)
  1. NORVASC [Suspect]
     Indication: HYPERTENSION
     Dosage: 15 MG (DAILY), ORAL
     Route: 048
  2. CARDENALIN (CANDESARTAN CILEXETIL) (DOXAZOSIN) [Suspect]
     Indication: HYPERTENSION
     Dosage: ORAL
     Route: 048
  3. CANDESARTAN CILEXETIL (CANDESARTAN CILEXETIL) [Suspect]
     Indication: ILL-DEFINED DISORDER
     Dosage: 10 MG (DAILY), ORAL
     Route: 048
  4. CARVEDILOL [Concomitant]
  5. RIFAMPICIN [Concomitant]
  6. BETA BLOCKING AGENTS [Concomitant]
  7. ANGIOTENSIN II ANTAGONISTS [Concomitant]

REACTIONS (8)
  - BLOOD PRESSURE INADEQUATELY CONTROLLED [None]
  - GENERALISED OEDEMA [None]
  - NEPHROTIC SYNDROME [None]
  - PLEURAL EFFUSION [None]
  - RENAL IMPAIRMENT [None]
  - SOLITARY KIDNEY SECONDARY [None]
  - TUBERCULOSIS [None]
  - WEIGHT INCREASED [None]
